FAERS Safety Report 8824669 (Version 3)
Quarter: 2012Q4

REPORT INFORMATION
  Report Type: 
  Country: JP (occurrence: JP)
  Receive Date: 20121004
  Receipt Date: 20121029
  Transmission Date: 20130627
  Serious: Yes (Death, Other)
  Sender: FDA-Public Use
  Company Number: PHHY2012JP086194

PATIENT
  Age: 40 Year
  Sex: Male
  Weight: 87 kg

DRUGS (6)
  1. CLOZARIL [Suspect]
     Indication: SCHIZOPHRENIA
     Dosage: 600 mg
     Route: 048
     Dates: start: 20050704
  2. PRAVASTATIN SODIUM [Concomitant]
     Indication: DYSLIPIDAEMIA
     Dosage: 20 mg, UNK
     Route: 048
     Dates: start: 20050704
  3. DISTIGMINE BROMIDE [Concomitant]
     Indication: DYSURIA
     Dosage: 5 mg
     Route: 048
     Dates: start: 20050704
  4. SODIUM PICOSULFATE [Concomitant]
     Indication: CONSTIPATION
     Dosage: 5 mg, UNK
     Route: 048
     Dates: start: 20050704
  5. SUCRALFATE [Concomitant]
     Indication: NEPHRITIS
     Dosage: 3 g, UNK
     Route: 048
     Dates: start: 20050704
  6. MAGNESIUM OXIDE [Concomitant]
     Indication: CONSTIPATION
     Dosage: 1.5 g, UNK
     Route: 048
     Dates: start: 20050704

REACTIONS (14)
  - Sudden cardiac death [Fatal]
  - Fall [Unknown]
  - Bundle branch block right [Unknown]
  - Cardio-respiratory arrest [Unknown]
  - Dyspnoea [Unknown]
  - Convulsion [Unknown]
  - Cardiac arrest [Not Recovered/Not Resolved]
  - Pulseless electrical activity [Unknown]
  - Blood lactate dehydrogenase increased [Unknown]
  - Blood phosphorus increased [Unknown]
  - Glycosylated haemoglobin increased [Recovered/Resolved]
  - Blood glucose increased [Unknown]
  - White blood cell count increased [Unknown]
  - Heart rate increased [Unknown]
